FAERS Safety Report 8142418-X (Version None)
Quarter: 2012Q1

REPORT INFORMATION
  Report Type: 
  Country: None (occurrence: None)
  Receive Date: 20120216
  Receipt Date: 20120213
  Transmission Date: 20120608
  Serious: Yes (Hospitalization, Other)
  Sender: FDA-Public Use
  Company Number: CA-AMGEN-CANSP2011040113

PATIENT
  Age: 50 Year
  Sex: Male

DRUGS (9)
  1. HYDROXYZINE [Concomitant]
     Dosage: 25 MG, UNK
  2. AVALIDE [Concomitant]
     Dosage: 12.5 MG, UNK
  3. CRESTOR [Concomitant]
     Dosage: 5 MG, UNK
  4. CICLOPIROX [Concomitant]
     Dosage: UNK
  5. ENBREL [Suspect]
     Indication: PSORIASIS
     Dosage: 50 MG, QWK
     Route: 058
     Dates: start: 20110609, end: 20110929
  6. IBUPROFEN                          /00109205/ [Concomitant]
     Dosage: 800 MG, UNK
  7. FLOMAX [Concomitant]
     Dosage: .04 MG, UNK
  8. CORTISONE ACETATE [Concomitant]
  9. BETAMETHASONE [Concomitant]
     Dosage: UNK

REACTIONS (6)
  - ENCEPHALOPATHY [None]
  - HYPERTENSION [None]
  - FATIGUE [None]
  - MIGRAINE [None]
  - DIZZINESS [None]
  - BLOOD CHOLESTEROL INCREASED [None]
